FAERS Safety Report 4358901-9 (Version None)
Quarter: 2004Q2

REPORT INFORMATION
  Report Type: 
  Country: None (occurrence: None)
  Receive Date: 20040511
  Receipt Date: 20031018
  Transmission Date: 20050107
  Serious: Yes (Hospitalization, Other)
  Sender: FDA-Public Use
  Company Number: KII-2003-0010121

PATIENT
  Age: 43 Year
  Sex: Male

DRUGS (4)
  1. OXYCONTIN [Suspect]
  2. MORPHINE SULFATE [Suspect]
  3. CARISOPRODOL [Concomitant]
  4. BARBITURATES [Suspect]

REACTIONS (9)
  - ASPIRATION [None]
  - BLOOD PRESSURE SYSTOLIC INCREASED [None]
  - DEPRESSED LEVEL OF CONSCIOUSNESS [None]
  - DYSPNOEA [None]
  - HEART RATE INCREASED [None]
  - MULTIPLE DRUG OVERDOSE [None]
  - PO2 DECREASED [None]
  - RESPIRATORY RATE INCREASED [None]
  - VOMITING [None]
